APPROVED DRUG PRODUCT: RYDAPT
Active Ingredient: MIDOSTAURIN
Strength: 25MG
Dosage Form/Route: CAPSULE;ORAL
Application: N207997 | Product #001 | TE Code: AB
Applicant: NOVARTIS PHARMACEUTICALS CORP
Approved: Apr 28, 2017 | RLD: Yes | RS: Yes | Type: RX

PATENTS:
Patent 8575146 | Expires: Dec 2, 2030
Patent 7973031 | Expires: Oct 9, 2028